FAERS Safety Report 24214913 (Version 1)
Quarter: 2024Q3

REPORT INFORMATION
  Report Type: Report from Study
  Country: US (occurrence: US)
  Receive Date: 20240815
  Receipt Date: 20240815
  Transmission Date: 20241017
  Serious: No
  Sender: APELLIS PHARMACEUTICALS
  Company Number: US-APELLIS-2024-APL-0000646

PATIENT

DRUGS (4)
  1. PEGCETACOPLAN [Suspect]
     Active Substance: PEGCETACOPLAN
     Indication: Paroxysmal nocturnal haemoglobinuria
     Dosage: 1080 MG/20 ML VIALS, INFUSE 1080 MG SUBCUTANEOUSLY TWICE WEEKLY AS DIRECTED
     Route: 058
     Dates: start: 20220421
  2. FOLIC ACID [Concomitant]
     Active Substance: FOLIC ACID
  3. ACYCLOVIR [Concomitant]
     Active Substance: ACYCLOVIR
  4. PENICILLIN [Concomitant]
     Active Substance: PENICILLIN

REACTIONS (2)
  - White blood cell count decreased [Unknown]
  - Skin discolouration [Unknown]
